FAERS Safety Report 20855203 (Version 1)
Quarter: 2022Q2

REPORT INFORMATION
  Report Type: Spontaneous
  Country: AR (occurrence: AR)
  Receive Date: 20220520
  Receipt Date: 20220520
  Transmission Date: 20220721
  Serious: Yes (Other)
  Sender: FDA-Public Use
  Company Number: AR-BAYER-2022A072010

PATIENT
  Age: 58 Year
  Sex: Male

DRUGS (4)
  1. NEXAVAR [Suspect]
     Active Substance: SORAFENIB
     Indication: Papillary thyroid cancer
     Dosage: 800 MG, QD
     Dates: start: 201204
  2. NEXAVAR [Suspect]
     Active Substance: SORAFENIB
     Indication: Metastases to lung
     Dosage: 400 - 600 MG, QD
     Dates: start: 201207
  3. NEXAVAR [Suspect]
     Active Substance: SORAFENIB
     Indication: Papillary thyroid cancer
     Dosage: 400 MG, QD
     Dates: start: 201607
  4. NEXAVAR [Suspect]
     Active Substance: SORAFENIB
     Indication: Papillary thyroid cancer
     Dosage: 200 MG, QD
     Dates: start: 2018, end: 201808

REACTIONS (1)
  - Basosquamous carcinoma [None]

NARRATIVE: CASE EVENT DATE: 20140101
